FAERS Safety Report 5499326-2 (Version None)
Quarter: 2007Q4

REPORT INFORMATION
  Report Type: 
  Country: None (occurrence: None)
  Receive Date: 20071024
  Receipt Date: 20071009
  Transmission Date: 20080405
  Serious: Yes (Life-Threatening)
  Sender: FDA-Public Use
  Company Number: 162575ISR

PATIENT

DRUGS (3)
  1. CISPLATIN [Suspect]
     Dosage: 160 MG ONCE EVERY 3 WEEKS (1 MG/ML, 1 IN 3 WK)
     Route: 042
     Dates: start: 20070823
  2. CISPLATIN [Suspect]
     Dosage: 160 MG ONCE EVERY 3 WEEKS (1 MG/ML, 1 IN 3 WK)
     Route: 042
     Dates: start: 20070913
  3. GEMCITABINE [Concomitant]

REACTIONS (5)
  - CEREBRAL INFARCTION [None]
  - CEREBRAL ISCHAEMIA [None]
  - CEREBROVASCULAR ACCIDENT [None]
  - NECROSIS ISCHAEMIC [None]
  - RENAL FAILURE [None]
